FAERS Safety Report 16019489 (Version 1)
Quarter: 2019Q1

REPORT INFORMATION
  Report Type: Spontaneous
  Country: FI (occurrence: FI)
  Receive Date: 20190228
  Receipt Date: 20190228
  Transmission Date: 20190418
  Serious: Yes (Hospitalization, Other)
  Sender: FDA-Public Use
  Company Number: FI-TEVA-2019-FI-1017297

PATIENT
  Age: 17 Year
  Sex: Male

DRUGS (8)
  1. RISPERIDONE. [Suspect]
     Active Substance: RISPERIDONE
     Dosage: .4 MILLIGRAM DAILY;
     Route: 065
  2. RISPERIDONE. [Suspect]
     Active Substance: RISPERIDONE
     Dosage: 3 MILLIGRAM DAILY;
     Route: 065
  3. VALPROATE [Concomitant]
     Active Substance: VALPROIC ACID
     Indication: EPILEPSY
     Dosage: 600-1000MG
     Route: 065
  4. RISPERIDONE. [Suspect]
     Active Substance: RISPERIDONE
     Indication: AUTISM SPECTRUM DISORDER
     Dosage: .25 MILLIGRAM DAILY;
     Route: 065
  5. RISPERIDONE. [Suspect]
     Active Substance: RISPERIDONE
     Dosage: 4.5 MILLIGRAM DAILY;
     Route: 065
  6. QUETIAPINE. [Suspect]
     Active Substance: QUETIAPINE
     Indication: AUTISM SPECTRUM DISORDER
     Dosage: 150-200MG
     Route: 065
  7. LEVOMEPROMAZINE [Concomitant]
     Active Substance: LEVOMEPROMAZINE
     Indication: AGGRESSION
     Route: 065
  8. PIPERIDINE [Concomitant]
     Active Substance: PIPERIDINE
     Dosage: 2 MILLIGRAM DAILY;
     Route: 065

REACTIONS (10)
  - Skin laceration [Unknown]
  - Eating disorder [Recovered/Resolved]
  - Insomnia [Unknown]
  - Intentional self-injury [Recovered/Resolved]
  - Weight decreased [Unknown]
  - Tardive dyskinesia [Recovered/Resolved]
  - Tic [Unknown]
  - Wound infection [Unknown]
  - Sepsis [Unknown]
  - Sedation [Unknown]
